FAERS Safety Report 11452236 (Version 1)
Quarter: 2015Q3

REPORT INFORMATION
  Report Type: Spontaneous
  Country: US (occurrence: None)
  Receive Date: 20150902
  Receipt Date: 20150902
  Transmission Date: 20151125
  Serious: No
  Sender: FDA-Public Use
  Company Number: None

PATIENT

DRUGS (1)
  1. AVYCAZ [Suspect]
     Active Substance: AVIBACTAM SODIUM\CEFTAZIDIME
     Dosage: STRENGTH:  2G/0.5 G PER VIAL  FORM: INJECTABLE
     Route: 042

REACTIONS (1)
  - Incorrect product formulation administered [None]
